FAERS Safety Report 23641714 (Version 1)
Quarter: 2024Q1

REPORT INFORMATION
  Report Type: Spontaneous
  Country: CA (occurrence: CA)
  Receive Date: 20240318
  Receipt Date: 20240318
  Transmission Date: 20240409
  Serious: Yes (Other)
  Sender: FDA-Public Use
  Company Number: None

PATIENT
  Age: 22 Year
  Sex: Male

DRUGS (11)
  1. BOTULINUM TOXIN TYPE A [Concomitant]
     Active Substance: BOTULINUM TOXIN TYPE A
     Indication: Product used for unknown indication
     Dosage: DOSE, FREQUENCY, THERAPY DURATION: ASKED BUT UNKNOWN
  2. METHOTREXATE [Suspect]
     Active Substance: METHOTREXATE
     Indication: Product used for unknown indication
     Dosage: THERAPY DURATION: ASKED BUT UNKNOWN
  3. ULTRAVATE [Suspect]
     Active Substance: HALOBETASOL PROPIONATE
     Indication: Product used for unknown indication
     Dosage: DOSAGE FORM, THERAPY DURATION: ASKED BUT UNKNOWN
  4. HYDROCORTISONE VALERATE [Suspect]
     Active Substance: HYDROCORTISONE VALERATE
     Indication: Product used for unknown indication
     Dosage: DOSE, THERAPY DURATION: ASKED BUT UNKNOWN
  5. BILASTINE [Suspect]
     Active Substance: BILASTINE
     Indication: Product used for unknown indication
     Dosage: DOSAGE FORM, THERAPY DURATION: ASKED BUT UNKNOWN
     Route: 048
  6. SERTRALINE [Concomitant]
     Active Substance: SERTRALINE HYDROCHLORIDE
     Indication: Product used for unknown indication
     Dosage: DOSE, FREQUENCY, THERAPY DURATION: ASKED BUT UNKNOWN
  7. CLOBETASOL [Suspect]
     Active Substance: CLOBETASOL
     Indication: Product used for unknown indication
     Dosage: DOSE, THERAPY DURATION: ASKED BUT UNKNOWN
  8. RANITIDINE [Suspect]
     Active Substance: RANITIDINE
     Indication: Product used for unknown indication
     Dosage: THERAPY DURATION, DOSAGE FORM: ASKED BUT UNKNOWN
  9. CONCERTA [Concomitant]
     Active Substance: METHYLPHENIDATE HYDROCHLORIDE
     Indication: Product used for unknown indication
     Dosage: DOSE, FREQUENCY, THERAPY DURATION: ASKED BUT UNKNOWN
  10. RUPATADINE FUMARATE [Suspect]
     Active Substance: RUPATADINE FUMARATE
     Indication: Product used for unknown indication
     Dosage: THERAPY DURATION: ASKED BUT UNKNOWN
     Route: 048
  11. PROTOPIC [Suspect]
     Active Substance: TACROLIMUS
     Indication: Product used for unknown indication
     Dosage: DOSE, THERAPY DURATION: ASKED BUT UNKNOWN
     Route: 003

REACTIONS (2)
  - Drug ineffective [Unknown]
  - Condition aggravated [Unknown]
